FAERS Safety Report 25199137 (Version 1)
Quarter: 2025Q2

REPORT INFORMATION
  Report Type: Spontaneous
  Country: US (occurrence: US)
  Receive Date: 20250415
  Receipt Date: 20250415
  Transmission Date: 20250717
  Serious: Yes (Death)
  Sender: AMGEN
  Company Number: US-AMGEN-USASP2025071815

PATIENT

DRUGS (4)
  1. REPATHA [Suspect]
     Active Substance: EVOLOCUMAB
     Indication: Product used for unknown indication
     Route: 065
  2. BEMPEDOIC ACID [Concomitant]
     Active Substance: BEMPEDOIC ACID
  3. ATORVASTATIN [Concomitant]
     Active Substance: ATORVASTATIN
  4. ROSUVASTATIN [Concomitant]
     Active Substance: ROSUVASTATIN
     Dosage: 80 MILLIGRAM, QD

REACTIONS (1)
  - Death [Fatal]
